FAERS Safety Report 4268580-7 (Version None)
Quarter: 2004Q1

REPORT INFORMATION
  Report Type: 
  Country: None (occurrence: None)
  Receive Date: 20040108
  Receipt Date: 20031224
  Transmission Date: 20041129
  Serious: Yes (Hospitalization)
  Sender: FDA-Public Use
  Company Number: 2003GB03118

PATIENT
  Age: 71 Year
  Sex: Male

DRUGS (2)
  1. CASODEX [Suspect]
     Indication: PROSTATE CANCER
     Dosage: 150 MG PO
     Route: 048
     Dates: start: 20020501, end: 20031101
  2. ACETAMINOPHEN [Concomitant]

REACTIONS (6)
  - BRADYCARDIA [None]
  - CIRCULATORY COLLAPSE [None]
  - FACIAL BONES FRACTURE [None]
  - HYPOTENSION [None]
  - SKULL FRACTURED BASE [None]
  - SYNCOPE VASOVAGAL [None]
